FAERS Safety Report 18444248 (Version 2)
Quarter: 2020Q4

REPORT INFORMATION
  Report Type: Report from Study
  Country: None (occurrence: AT)
  Receive Date: 20201030
  Receipt Date: 20201103
  Transmission Date: 20210114
  Serious: Yes (Hospitalization, Other)
  Sender: FDA-Public Use
  Company Number: AT-ABBVIE-20K-009-3629098-00

PATIENT
  Sex: Male

DRUGS (2)
  1. DUODOPA [Suspect]
     Active Substance: CARBIDOPA\LEVODOPA
     Indication: PARKINSON^S DISEASE
     Dosage: 16 H, MD 3 ML, CR DAYTIME 2.2 ML/H, ED 0.8 ML
     Route: 050
  2. DUODOPA [Suspect]
     Active Substance: CARBIDOPA\LEVODOPA
     Dosage: 16 H, MD 8 ML, CR DAYTIME 2.2 ML/H, ED 0.8 ML
     Route: 050
     Dates: start: 20201020, end: 202010

REACTIONS (3)
  - Injection site pain [Not Recovered/Not Resolved]
  - Abdominal abscess [Not Recovered/Not Resolved]
  - On and off phenomenon [Recovering/Resolving]

NARRATIVE: CASE EVENT DATE: 20201025
